FAERS Safety Report 19659860 (Version 1)
Quarter: 2021Q3

REPORT INFORMATION
  Report Type: Spontaneous
  Country: US (occurrence: US)
  Receive Date: 20210804
  Receipt Date: 20210804
  Transmission Date: 20211014
  Serious: Yes (Disabling)
  Sender: FDA-Public Use
  Company Number: None

PATIENT
  Age: 20 Year
  Sex: Female
  Weight: 47.63 kg

DRUGS (4)
  1. LAMICTAL [Concomitant]
     Active Substance: LAMOTRIGINE
  2. WELLBUTRIN [Concomitant]
     Active Substance: BUPROPION HYDROCHLORIDE
  3. ASHWAGHANDA [Concomitant]
  4. NEXPLANON [Suspect]
     Active Substance: ETONOGESTREL
     Dates: start: 20200815, end: 20200915

REACTIONS (1)
  - Mental disorder [None]

NARRATIVE: CASE EVENT DATE: 20200901
